FAERS Safety Report 9476602 (Version 1)
Quarter: 2013Q3

REPORT INFORMATION
  Report Type: Spontaneous
  Country: US (occurrence: None)
  Receive Date: 20130823
  Receipt Date: 20130823
  Transmission Date: 20140515
  Serious: Yes (Disabling)
  Sender: FDA-Public Use
  Company Number: None

PATIENT
  Age: 57 Year
  Sex: Female
  Weight: 74.84 kg

DRUGS (1)
  1. SYNTHROID [Suspect]
     Indication: HYPOTHYROIDISM
     Dosage: 30 PILLS ONCE DAILY TAKEN BY MOUTH
     Route: 048
     Dates: start: 20130311, end: 20130501

REACTIONS (8)
  - Hyperthyroidism [None]
  - Dizziness [None]
  - Headache [None]
  - Alopecia [None]
  - Vision blurred [None]
  - Fatigue [None]
  - Palpitations [None]
  - Joint swelling [None]
